FAERS Safety Report 7868393-0 (Version None)
Quarter: 2011Q4

REPORT INFORMATION
  Report Type: 
  Country: None (occurrence: None)
  Receive Date: 20111028
  Receipt Date: 20101217
  Transmission Date: 20120403
  Serious: No
  Sender: FDA-Public Use
  Company Number: US-AMGEN-KDL307486

PATIENT
  Age: 62 Year
  Sex: Female

DRUGS (2)
  1. ENBREL [Suspect]
     Indication: RHEUMATOID ARTHRITIS
     Dosage: 50 MG, QWK
     Route: 058
     Dates: start: 20010901
  2. ENBREL [Suspect]
     Dates: start: 20010101

REACTIONS (9)
  - NECK PAIN [None]
  - INJECTION SITE HAEMATOMA [None]
  - RHEUMATOID FACTOR INCREASED [None]
  - RED BLOOD CELL SEDIMENTATION RATE INCREASED [None]
  - HEADACHE [None]
  - SKIN LESION [None]
  - BODY HEIGHT DECREASED [None]
  - RHEUMATOID ARTHRITIS [None]
  - MUSCULOSKELETAL PAIN [None]
